FAERS Safety Report 5339323-0 (Version None)
Quarter: 2007Q2

REPORT INFORMATION
  Report Type: 
  Country: None (occurrence: None)
  Receive Date: 20070322
  Receipt Date: 20061218
  Transmission Date: 20071010
  Serious: Yes (Other)
  Sender: FDA-Public Use
  Company Number: 200614619BCC

PATIENT
  Age: 55 Year
  Sex: Female
  Weight: 52.1637 kg

DRUGS (7)
  1. ALEVE [Suspect]
     Indication: PAIN
     Dosage: 1540 MG, TOTAL DAILY, ORAL 880 MG, TOTAL DAILY, ORAL 440  MG, TOTAL DAILY, ORAL
     Route: 048
     Dates: start: 20061105
  2. ALEVE [Suspect]
     Indication: PAIN
     Dosage: 1540 MG, TOTAL DAILY, ORAL 880 MG, TOTAL DAILY, ORAL 440  MG, TOTAL DAILY, ORAL
     Route: 048
     Dates: start: 20061106
  3. ALEVE [Suspect]
     Indication: PAIN
     Dosage: 1540 MG, TOTAL DAILY, ORAL 880 MG, TOTAL DAILY, ORAL 440  MG, TOTAL DAILY, ORAL
     Route: 048
     Dates: start: 20061108
  4. DURAGESIC-100 [Concomitant]
  5. OXYCODONE HCL [Concomitant]
  6. ZOLOFT [Concomitant]
  7. LIPITOR [Concomitant]

REACTIONS (4)
  - ANGIOEDEMA [None]
  - HAEMATOCHEZIA [None]
  - OEDEMA PERIPHERAL [None]
  - SWELLING FACE [None]
